FAERS Safety Report 7919832-8 (Version None)
Quarter: 2011Q4

REPORT INFORMATION
  Report Type: 
  Country: None (occurrence: None)
  Receive Date: 20111117
  Receipt Date: 20111117
  Transmission Date: 20120403
  Serious: Yes (Other)
  Sender: FDA-Public Use
  Company Number: None

PATIENT
  Age: 53 Year
  Sex: Male
  Weight: 82.553 kg

DRUGS (1)
  1. XANAX [Suspect]
     Indication: ANXIETY DISORDER
     Dosage: 0.5MG
     Route: 048
     Dates: start: 20111022, end: 20111029

REACTIONS (4)
  - HEART RATE INCREASED [None]
  - DYSPNOEA [None]
  - PRODUCT QUALITY ISSUE [None]
  - ANXIETY [None]
